FAERS Safety Report 7677659-9 (Version None)
Quarter: 2011Q3

REPORT INFORMATION
  Report Type: 
  Country: None (occurrence: None)
  Receive Date: 20110811
  Receipt Date: 20110803
  Transmission Date: 20111222
  Serious: Yes (Congenital Anomaly)
  Sender: FDA-Public Use
  Company Number: PHHY2011TR50770

PATIENT

DRUGS (1)
  1. IMATINIB MESYLATE [Suspect]
     Route: 064

REACTIONS (2)
  - CONGENITAL INGUINAL HERNIA [None]
  - MATERNAL EXPOSURE DURING PREGNANCY [None]
